FAERS Safety Report 8162565 (Version 4)
Quarter: 2013Q2

REPORT INFORMATION
  Report Type: Report from Study
  Country: JP (occurrence: JP)
  Receive Date: 20110929
  Receipt Date: 20130412
  Transmission Date: 20140414
  Serious: Yes (Death)
  Sender: FDA-Public Use
  Company Number: JP-GENZYME-THYM-1002756

PATIENT
  Age: 61 Year
  Sex: Male
  Weight: 67 kg

DRUGS (4)
  1. THYMOGLOBULINE [Suspect]
     Indication: APLASTIC ANAEMIA
     Dosage: 250 MG, QD
     Route: 042
     Dates: start: 20110907, end: 20110908
  2. THYMOGLOBULINE [Suspect]
     Dosage: 80 MG, QD
     Route: 042
     Dates: start: 20110909, end: 20110909
  3. CICLOSPORIN [Concomitant]
     Indication: PRODUCT USED FOR UNKNOWN INDICATION
     Dosage: UNK
     Route: 048
     Dates: start: 20110907, end: 20110910
  4. TACROLIMUS [Concomitant]
     Indication: APLASTIC ANAEMIA
     Dosage: UNK
     Route: 065
     Dates: start: 20110907, end: 20110909

REACTIONS (3)
  - Liver disorder [Fatal]
  - Renal failure [Fatal]
  - Respiratory failure [Fatal]
